FAERS Safety Report 6244435-3 (Version None)
Quarter: 2009Q2

REPORT INFORMATION
  Report Type: 
  Country: None (occurrence: None)
  Receive Date: 20090625
  Receipt Date: 20090617
  Transmission Date: 20091009
  Serious: Yes (Death, Life-Threatening)
  Sender: FDA-Public Use
  Company Number: JP-JNJFOC-20090606527

PATIENT
  Age: 68 Year
  Sex: Male

DRUGS (5)
  1. REMICADE [Suspect]
     Dosage: 5TH DOSE
     Route: 042
  2. REMICADE [Suspect]
     Indication: RHEUMATOID ARTHRITIS
     Route: 042
  3. RHEUMATREX [Suspect]
     Indication: RHEUMATOID ARTHRITIS
     Route: 048
  4. PREDNISOLONE [Suspect]
     Indication: DRUG USE FOR UNKNOWN INDICATION
  5. BAKTAR [Suspect]
     Indication: DRUG USE FOR UNKNOWN INDICATION
     Route: 048

REACTIONS (2)
  - BRAIN STEM INFARCTION [None]
  - INFECTION [None]
